FAERS Safety Report 6268445-5 (Version None)
Quarter: 2009Q3

REPORT INFORMATION
  Report Type: 
  Country: None (occurrence: None)
  Receive Date: 20090715
  Receipt Date: 20090707
  Transmission Date: 20100115
  Serious: Yes (Disabling)
  Sender: FDA-Public Use
  Company Number: GB-PFIZER INC-2009232535

PATIENT
  Age: 42 Year

DRUGS (2)
  1. SERTRALINE HCL [Suspect]
     Indication: DEPRESSION
     Route: 048
  2. IBUPROFEN [Suspect]
     Route: 048

REACTIONS (1)
  - OSTEONECROSIS [None]
